FAERS Safety Report 5121605-9 (Version None)
Quarter: 2006Q4

REPORT INFORMATION
  Report Type: 
  Country: None (occurrence: None)
  Receive Date: 20061006
  Receipt Date: 20060925
  Transmission Date: 20070319
  Serious: Yes (Hospitalization)
  Sender: FDA-Public Use
  Company Number: FR-AVENTIS-200613332FR

PATIENT
  Age: 57 Year
  Sex: Male
  Weight: 100 kg

DRUGS (5)
  1. LOVENOX                            /00889602/ [Suspect]
     Route: 058
     Dates: start: 20060815, end: 20060829
  2. ALLOPURINOL [Suspect]
     Route: 048
     Dates: start: 20040101
  3. LYRICA [Suspect]
     Route: 048
     Dates: start: 20060728
  4. LODALES [Concomitant]
     Route: 048
     Dates: start: 20050101
  5. SKENAN LP [Concomitant]
     Route: 048
     Dates: start: 20060728

REACTIONS (10)
  - ABDOMINAL PAIN [None]
  - DIARRHOEA [None]
  - DRUG HYPERSENSITIVITY [None]
  - DRUG RASH WITH EOSINOPHILIA AND SYSTEMIC SYMPTOMS [None]
  - EOSINOPHILIA [None]
  - INFLAMMATION [None]
  - PYREXIA [None]
  - RASH VESICULAR [None]
  - THROMBOCYTOPENIA [None]
  - VASCULITIS [None]
